FAERS Safety Report 4988459-2 (Version None)
Quarter: 2006Q2

REPORT INFORMATION
  Report Type: 
  Country: None (occurrence: None)
  Receive Date: 20060426
  Receipt Date: 20060417
  Transmission Date: 20061013
  Serious: Yes (Other)
  Sender: FDA-Public Use
  Company Number: 2006051717

PATIENT
  Age: 66 Year
  Sex: Male

DRUGS (6)
  1. FRESHBURST LISTERINE (MENTHOL, METHYL SALICYLATE, EUCALYPTOL, THYMOL) [Suspect]
     Indication: ALCOHOLISM
     Dosage: ORAL
     Route: 048
     Dates: start: 20060301
  2. PAROXETINE [Concomitant]
  3. EZETIMIBE (EZETIMIBE) [Concomitant]
  4. BUSPIRON (HYOSCINE BUTYLBROMIDE, METAMIZOLE SODIUM MONOHYDRATE) [Concomitant]
  5. SIMVASTATIN [Concomitant]
  6. NICOTINIC ACID [Concomitant]

REACTIONS (1)
  - INTENTIONAL DRUG MISUSE [None]
